FAERS Safety Report 4760506-2 (Version None)
Quarter: 2005Q3

REPORT INFORMATION
  Report Type: 
  Country: None (occurrence: None)
  Receive Date: 20050902
  Receipt Date: 20050711
  Transmission Date: 20060218
  Serious: Yes (Hospitalization)
  Sender: FDA-Public Use
  Company Number: FR-BRISTOL-MYERS SQUIBB COMPANY-13036611

PATIENT
  Age: 45 Year
  Sex: Female

DRUGS (6)
  1. ZERIT [Suspect]
     Route: 048
     Dates: start: 20050308, end: 20050518
  2. NORVIR [Suspect]
     Dates: start: 20050308, end: 20050518
  3. VIREAD [Suspect]
     Dates: start: 20050308, end: 20050518
  4. TELZIR [Suspect]
     Dates: start: 20050308, end: 20050518
  5. DEPAMIDE [Suspect]
     Dosage: 300 MG
     Dates: start: 20050308
  6. EFFEXOR [Suspect]
     Dosage: 37.5 MG
     Dates: start: 20050308

REACTIONS (3)
  - ANGIONEUROTIC OEDEMA [None]
  - DYSPNOEA [None]
  - URTICARIA [None]
